FAERS Safety Report 14082324 (Version 1)
Quarter: 2017Q4

REPORT INFORMATION
  Report Type: Spontaneous
  Country: US (occurrence: US)
  Receive Date: 20171012
  Receipt Date: 20171012
  Transmission Date: 20180321
  Serious: No
  Sender: FDA-Public Use
  Company Number: US-MYLANLABS-2017M1049695

PATIENT
  Age: 83 Year
  Sex: Male
  Weight: 71 kg

DRUGS (8)
  1. EFFIENT [Concomitant]
     Active Substance: PRASUGREL HYDROCHLORIDE
     Indication: PRODUCT USED FOR UNKNOWN INDICATION
     Dosage: 10 MG, QD
  2. VITAMIN C [Concomitant]
     Active Substance: ASCORBIC ACID
     Indication: PRODUCT USED FOR UNKNOWN INDICATION
     Dosage: UNK
  3. MULTIVITAMIN [Concomitant]
     Active Substance: VITAMINS
     Indication: PRODUCT USED FOR UNKNOWN INDICATION
     Dosage: UNK
  4. LOSARTAN POTASSIUM. [Concomitant]
     Active Substance: LOSARTAN POTASSIUM
     Indication: PRODUCT USED FOR UNKNOWN INDICATION
     Dosage: 50 MG, QD
  5. ATORVASTATIN CALCIUM TABLETS [Suspect]
     Active Substance: ATORVASTATIN CALCIUM
     Indication: MYOCARDIAL INFARCTION
     Dosage: 1 DF, HS
     Route: 048
     Dates: start: 20170201, end: 20170805
  6. METOPROLOL TARTRATE. [Concomitant]
     Active Substance: METOPROLOL TARTRATE
     Indication: PRODUCT USED FOR UNKNOWN INDICATION
     Dosage: 25 MG, BID (12.5 MG AM AND PM)
  7. ASPIRIN. [Concomitant]
     Active Substance: ASPIRIN
     Indication: PRODUCT USED FOR UNKNOWN INDICATION
     Dosage: LOW DOSE, BID
  8. XANAX [Concomitant]
     Active Substance: ALPRAZOLAM
     Indication: PRODUCT USED FOR UNKNOWN INDICATION
     Dosage: 25 MG, PRN

REACTIONS (13)
  - Abdominal discomfort [Recovering/Resolving]
  - Tremor [Recovering/Resolving]
  - Bronchitis [Recovering/Resolving]
  - Vision blurred [Recovering/Resolving]
  - Pyrexia [Recovering/Resolving]
  - Muscle spasms [Recovering/Resolving]
  - Hypoaesthesia [Recovering/Resolving]
  - Abdominal distension [Recovering/Resolving]
  - Chills [Recovering/Resolving]
  - Gait disturbance [Recovered/Resolved]
  - Musculoskeletal stiffness [Recovering/Resolving]
  - Muscular weakness [Recovering/Resolving]
  - Nausea [Recovering/Resolving]

NARRATIVE: CASE EVENT DATE: 201706
